FAERS Safety Report 6900378-0 (Version None)
Quarter: 2010Q3

REPORT INFORMATION
  Report Type: 
  Country: None (occurrence: None)
  Receive Date: 20100803
  Receipt Date: 20100723
  Transmission Date: 20110219
  Serious: Yes (Life-Threatening)
  Sender: FDA-Public Use
  Company Number: PHHY2010SE48343

PATIENT
  Sex: Female

DRUGS (2)
  1. ESIDRIX [Suspect]
     Indication: HYPERTENSION
     Dosage: 25 MG, UNK
     Dates: end: 20100723
  2. NAPROXEN [Interacting]
     Indication: ARTHRITIS

REACTIONS (5)
  - DIZZINESS [None]
  - DRUG INTERACTION [None]
  - FEAR OF DEATH [None]
  - FEELING DRUNK [None]
  - WEIGHT INCREASED [None]
